FAERS Safety Report 6284832-3 (Version None)
Quarter: 2009Q3

REPORT INFORMATION
  Report Type: 
  Country: None (occurrence: None)
  Receive Date: 20090727
  Receipt Date: 20090715
  Transmission Date: 20100115
  Serious: Yes (Hospitalization, Congenital Anomaly)
  Sender: FDA-Public Use
  Company Number: A0680983A

PATIENT
  Sex: Female

DRUGS (3)
  1. PAXIL [Suspect]
     Indication: DEPRESSION
     Dosage: 20MG PER DAY
     Dates: start: 19950301
  2. VITAMIN TAB [Concomitant]
  3. HYDROMET [Concomitant]
     Dates: start: 19951101

REACTIONS (6)
  - ATRIAL SEPTAL DEFECT [None]
  - CARDIAC FAILURE CONGESTIVE [None]
  - DRUG EXPOSURE DURING PREGNANCY [None]
  - HEART DISEASE CONGENITAL [None]
  - POLYDACTYLY [None]
  - VENTRICULAR SEPTAL DEFECT [None]
